FAERS Safety Report 21361124 (Version 11)
Quarter: 2024Q3

REPORT INFORMATION
  Report Type: Report from Study
  Country: CA (occurrence: CA)
  Receive Date: 20220921
  Receipt Date: 20240716
  Transmission Date: 20241017
  Serious: Yes (Hospitalization, Other)
  Sender: BIOCON
  Company Number: CA-MYLANLABS-2022M1043729

PATIENT

DRUGS (3)
  1. HULIO [Suspect]
     Active Substance: ADALIMUMAB-FKJP
     Indication: Psoriatic arthropathy
     Dosage: 40 MG, Q2W
     Route: 058
  2. HULIO [Suspect]
     Active Substance: ADALIMUMAB-FKJP
     Dosage: 40 MG, QW (EVERY WEEK)
     Route: 058
     Dates: start: 20220408
  3. HULIO [Suspect]
     Active Substance: ADALIMUMAB-FKJP
     Dosage: 40 MG, Q2W
     Route: 058
     Dates: start: 20220408

REACTIONS (25)
  - Hypertensive crisis [Unknown]
  - Water intoxication [Unknown]
  - Psoriatic arthropathy [Unknown]
  - Laryngeal oedema [Unknown]
  - Faeces discoloured [Unknown]
  - Asthenia [Unknown]
  - Illness [Unknown]
  - Malaise [Unknown]
  - Rhinorrhoea [Unknown]
  - Nasal congestion [Unknown]
  - Dysphonia [Unknown]
  - Thirst [Unknown]
  - Blood sodium decreased [Unknown]
  - Back pain [Unknown]
  - Intervertebral disc protrusion [Unknown]
  - Aphonia [Unknown]
  - Skin warm [Unknown]
  - Pain [Not Recovered/Not Resolved]
  - Insomnia [Unknown]
  - Diarrhoea [Unknown]
  - COVID-19 [Unknown]
  - Pruritus [Unknown]
  - Dyspnoea [Unknown]
  - Off label use [Unknown]
  - Swelling [Unknown]

NARRATIVE: CASE EVENT DATE: 20220408
